FAERS Safety Report 8046386-0 (Version None)
Quarter: 2012Q1

REPORT INFORMATION
  Report Type: 
  Country: None (occurrence: None)
  Receive Date: 20120113
  Receipt Date: 20120111
  Transmission Date: 20120608
  Serious: Yes (Hospitalization)
  Sender: FDA-Public Use
  Company Number: ZA-AMGEN-ZAFCT2011052662

PATIENT
  Age: 87 Year
  Sex: Male

DRUGS (11)
  1. SULFASALAZINE [Concomitant]
     Indication: ARTHRITIS
     Dosage: 500 MG, UNK
     Route: 048
     Dates: start: 20110102
  2. PULMICORT [Concomitant]
     Indication: EMPHYSEMA
     Dosage: 1 MUG, UNK
     Route: 055
     Dates: start: 19990101
  3. XGEVA [Suspect]
     Indication: PROSTATE CANCER
     Dosage: 2 ML, Q4WK
     Route: 058
     Dates: start: 20110207
  4. CASODEX [Concomitant]
     Dosage: 50 MG, QD
     Route: 048
     Dates: start: 20100215, end: 20110801
  5. ARCOXIA [Concomitant]
     Indication: ARTHRITIS
     Dosage: 90 MG, UNK
     Route: 048
     Dates: start: 20101005
  6. COZAAR [Concomitant]
     Indication: HYPERTENSION
     Dosage: 50 MG, UNK
     Route: 048
     Dates: start: 20100601
  7. CALCIUM [Concomitant]
     Dosage: UNK UNK, QD
     Route: 048
     Dates: start: 20070606
  8. VITAMIN D [Concomitant]
     Dosage: UNK
     Route: 048
     Dates: start: 20070606
  9. NATRILIX SR [Concomitant]
     Indication: HYPERTENSION
     Dosage: 1.5 MG, UNK
     Route: 048
     Dates: start: 20100621
  10. FORMOTEROL FUMARATE [Concomitant]
     Indication: EMPHYSEMA
     Dosage: 1 MUG, UNK
     Route: 055
     Dates: start: 19990101
  11. XALATAN [Concomitant]
     Indication: GLAUCOMA
     Dosage: UNK UNK, QD
     Route: 048
     Dates: start: 19970101

REACTIONS (2)
  - URINARY INCONTINENCE [None]
  - LUMBAR SPINAL STENOSIS [None]
